FAERS Safety Report 11568584 (Version 1)
Quarter: 2015Q3

REPORT INFORMATION
  Report Type: Spontaneous
  Country: IT (occurrence: IT)
  Receive Date: 20150929
  Receipt Date: 20150929
  Transmission Date: 20151125
  Serious: Yes (Other)
  Sender: FDA-Public Use
  Company Number: IT-TEVA-596027ACC

PATIENT
  Age: 41 Year
  Sex: Male
  Weight: 109 kg

DRUGS (1)
  1. RISPERIDONE TEVA - TEVA ITALIA S.R.L. [Suspect]
     Active Substance: RISPERIDONE
     Indication: PSYCHOTIC DISORDER
     Dosage: 1 MILLIGRAM DAILY; 1 MG DAILY
     Route: 048
     Dates: start: 20150824, end: 20150830

REACTIONS (4)
  - Panic attack [Recovered/Resolved]
  - Pruritus [Recovered/Resolved]
  - Drug intolerance [Recovered/Resolved]
  - Asthenia [Recovered/Resolved]

NARRATIVE: CASE EVENT DATE: 20150824
